FAERS Safety Report 12775565 (Version 1)
Quarter: 2016Q3

REPORT INFORMATION
  Report Type: Other
  Country: CA (occurrence: CA)
  Receive Date: 20160923
  Receipt Date: 20160923
  Transmission Date: 20161109
  Serious: Yes (Other)
  Sender: FDA-Public Use
  Company Number: CA-APOTEX-2016AP011943

PATIENT
  Sex: Male

DRUGS (1)
  1. APO-MONTELUKAST [Suspect]
     Active Substance: MONTELUKAST SODIUM
     Indication: PRODUCT USED FOR UNKNOWN INDICATION
     Dosage: 10 MG, QD
     Route: 065

REACTIONS (3)
  - Condition aggravated [Not Recovered/Not Resolved]
  - Bacterial infection [Not Recovered/Not Resolved]
  - Dermatitis [Not Recovered/Not Resolved]
